FAERS Safety Report 8513257-2 (Version None)
Quarter: 2012Q3

REPORT INFORMATION
  Report Type: 
  Country: None (occurrence: None)
  Receive Date: 20120716
  Receipt Date: 20120706
  Transmission Date: 20120928
  Serious: Yes (Hospitalization, Other)
  Sender: FDA-Public Use
  Company Number: US-BAYER-2012-055369

PATIENT
  Age: 31 Year
  Sex: Female

DRUGS (14)
  1. YAZ [Suspect]
     Indication: MENSTRUATION IRREGULAR
     Dosage: UNK
     Dates: end: 20110901
  2. FLUOXETINE HYDROCHLORIDE [Concomitant]
     Dosage: 20 MG, UNK
  3. FLUTICASONE PROPIONATE [Concomitant]
     Dosage: 50MCG SPRAY
     Dates: start: 20111117
  4. CETIRIZINE HYDROCHLORIDE [Concomitant]
     Dosage: 100 MG, UNK
     Dates: start: 20111118
  5. OXYCODONE HCL AND ACETAMINOPHEN [Concomitant]
     Dosage: 5-500
     Dates: start: 20110916, end: 20111020
  6. ERGOCALCIFEROL [Concomitant]
     Dosage: 50,000 UNITS 1 CAP WEEKLY
     Route: 048
  7. PROZAC [Concomitant]
     Dosage: 20MG 1 CAPSULE DAILY
     Route: 048
  8. CIPROFLOXACIN HCL [Concomitant]
     Dosage: 500 MG, UNK
     Dates: start: 20110916
  9. TAMSULOSIN HYDROCHLORIDE [Concomitant]
     Dosage: 0.4 MG, UNK
     Dates: start: 20110916
  10. NITROFURANTOIN [Concomitant]
     Dosage: 100 MG, UNK
     Dates: start: 20110921
  11. DROSPIRENONE AND ETHINYL ESTRADIOL [Suspect]
  12. TRIAMCINOLONE ACETATE [Concomitant]
     Dosage: 0.1% BID (INTERPRETED AS TWICE PER DAY) AS NEEDED
  13. TYLENOL PM [Concomitant]
     Indication: PAIN
  14. PROMETHAZINE [Concomitant]
     Dosage: 25 MG, UNK
     Dates: start: 20110916, end: 20110921

REACTIONS (17)
  - MENSTRUAL DISORDER [None]
  - PRESYNCOPE [None]
  - MOBILITY DECREASED [None]
  - CHOLECYSTITIS CHRONIC [None]
  - BILE DUCT STONE [None]
  - DIARRHOEA [None]
  - ABASIA [None]
  - ABDOMINAL DISTENSION [None]
  - VOMITING [None]
  - DYSSTASIA [None]
  - HYPERHIDROSIS [None]
  - PULMONARY EMBOLISM [None]
  - THROMBOSIS [None]
  - BACK PAIN [None]
  - NAUSEA [None]
  - ABDOMINAL PAIN [None]
  - NEPHROLITHIASIS [None]
